FAERS Safety Report 8584838-5 (Version None)
Quarter: 2012Q3

REPORT INFORMATION
  Report Type: 
  Country: None (occurrence: None)
  Receive Date: 20120730
  Receipt Date: 20120723
  Transmission Date: 20120928
  Serious: Yes (Death)
  Sender: FDA-Public Use
  Company Number: 7149381

PATIENT
  Age: 55 Year
  Sex: Female

DRUGS (7)
  1. METFORMIN HCL [Suspect]
     Indication: TYPE 2 DIABETES MELLITUS
     Dosage: 3 DF (1 DF, 3 IN 1 D), ORAL
     Route: 048
     Dates: end: 20120310
  2. KARDEGIC (ACETYLSALICYLATE LYSINE) (75 MG, POWER FOR ORAL SOLUTION) (A [Suspect]
     Indication: MYOCARDIAL ISCHAEMIA
     Dosage: 1 DF (1DF, 1 IN 1 D), ORAL
     Route: 048
     Dates: end: 20120310
  3. NEBIVOLOL [Suspect]
     Indication: HYPERTENSION
     Dosage: 1 DF (Q DF, 1 IN 1 D), ORAL
     Route: 048
     Dates: end: 20120310
  4. ESOMEPRAZOLE MAGNESIUM [Suspect]
     Indication: HYPERCHLORHYDRIA
     Dosage: 1 IN 1 D, ORAL
     Route: 048
     Dates: end: 20120310
  5. PRETERAX (BI PREDONIUM) (PERINDOPRIL, INADAPAMIDE) [Suspect]
     Indication: HYPERTENSION
     Dosage: 1 IN 1 D, ORAL
     Route: 048
     Dates: end: 20120310
  6. LEVOTHYROXINE SODIUM [Suspect]
     Indication: POST PROCEDURAL HYPOTHYROIDISM
     Dosage: 1 DF (1 DF, 1 IN 1D), ORAL
     Route: 048
     Dates: end: 20120310
  7. DIAMICRON (GLICLAZIDE) (GLICLAZIDE) [Suspect]
     Dosage: ORAL
     Route: 048
     Dates: end: 20120320

REACTIONS (4)
  - BLOOD PRESSURE INCREASED [None]
  - BRAIN DEATH [None]
  - CEREBRAL HAEMORRHAGE [None]
  - LOSS OF CONSCIOUSNESS [None]
